FAERS Safety Report 23746364 (Version 2)
Quarter: 2024Q2

REPORT INFORMATION
  Report Type: Report from Study
  Country: GR (occurrence: GR)
  Receive Date: 20240416
  Receipt Date: 20240503
  Transmission Date: 20240716
  Serious: Yes (Hospitalization, Other)
  Sender: FDA-Public Use
  Company Number: GR-ABBVIE-5716087

PATIENT
  Age: 66 Year
  Sex: Female

DRUGS (18)
  1. CARBIDOPA\LEVODOPA [Suspect]
     Active Substance: CARBIDOPA\LEVODOPA
     Indication: Parkinson^s disease
     Dosage: MORNING DOSE: 10.5ML; CONTINUOUS RATE: 2.5ML/H; EXTRA DOSE: 1.0ML
     Route: 050
     Dates: start: 20240405, end: 20240410
  2. CARBIDOPA\LEVODOPA [Suspect]
     Active Substance: CARBIDOPA\LEVODOPA
     Dosage: MORNING DOSE: 10.5ML; CONTINUOUS RATE: 2.5ML/H; EXTRA DOSE: 1.0ML
     Route: 050
  3. TROFOCARD [Concomitant]
     Indication: Product used for unknown indication
     Route: 048
  4. SEROQUEL [Concomitant]
     Active Substance: QUETIAPINE FUMARATE
     Indication: Product used for unknown indication
     Route: 048
  5. EZETIMIBE\SIMVASTATIN [Concomitant]
     Active Substance: EZETIMIBE\SIMVASTATIN
     Indication: Blood cholesterol abnormal
     Route: 048
  6. REQUIP XL [Concomitant]
     Active Substance: ROPINIROLE HYDROCHLORIDE
     Indication: Product used for unknown indication
     Route: 048
  7. BENSERAZIDE HYDROCHLORIDE\LEVODOPA [Concomitant]
     Active Substance: BENSERAZIDE HYDROCHLORIDE\LEVODOPA
     Indication: Product used for unknown indication
     Dosage: UNIT DOSE: THREE QUARTERS OF UNSPECIFIED DOSE?FREQUENCY TEXT: (1 IN 1 DAYS) AT 23:00PM
     Route: 048
  8. ALFACALCIDOL [Concomitant]
     Active Substance: ALFACALCIDOL
     Indication: Osteoporosis
     Route: 048
  9. OPRAZIUM [Concomitant]
     Indication: Gastrointestinal disorder prophylaxis
     Route: 048
  10. CLOPIDOGREL [Concomitant]
     Active Substance: CLOPIDOGREL BISULFATE
     Indication: Product used for unknown indication
     Route: 048
  11. ENLIFT [Concomitant]
     Indication: Depression
     Route: 048
  12. CLOPIDOGREL BISULFATE [Concomitant]
     Active Substance: CLOPIDOGREL BISULFATE
     Indication: Product used for unknown indication
     Dosage: FREQUENCY TEXT: TUE-THU-SAT-SUN
     Route: 048
  13. ALFACALCIDOL [Concomitant]
     Active Substance: ALFACALCIDOL
     Indication: Osteoporosis
     Route: 048
  14. EXELON [Concomitant]
     Active Substance: RIVASTIGMINE TARTRATE
     Indication: Product used for unknown indication
     Dosage: UNIT DOSE: 4.6 MG
     Route: 062
  15. D3 FIX [Concomitant]
     Indication: Product used for unknown indication
     Route: 048
  16. ZINACEF [Concomitant]
     Active Substance: CEFUROXIME SODIUM
     Indication: Antibiotic prophylaxis
     Route: 042
     Dates: start: 20240408
  17. FOLIC ACID [Concomitant]
     Active Substance: FOLIC ACID
     Indication: Product used for unknown indication
     Dosage: TIME INTERVAL: 0.33333333 MONTHS
     Route: 048
  18. NEUPRO [Concomitant]
     Active Substance: ROTIGOTINE
     Indication: Parkinson^s disease
     Route: 062

REACTIONS (6)
  - Pneumoperitoneum [Unknown]
  - Acute abdomen [Unknown]
  - Abdominal pain [Recovered/Resolved]
  - Stoma site reaction [Recovered/Resolved]
  - Peritonitis [Recovering/Resolving]
  - Pyrexia [Recovered/Resolved]

NARRATIVE: CASE EVENT DATE: 20240409
